FAERS Safety Report 8165615-6 (Version None)
Quarter: 2012Q1

REPORT INFORMATION
  Report Type: 
  Country: None (occurrence: None)
  Receive Date: 20120227
  Receipt Date: 20120220
  Transmission Date: 20120608
  Serious: Yes (Other)
  Sender: FDA-Public Use
  Company Number: US-UCBSA-051993

PATIENT
  Age: 42 Year
  Sex: Female
  Weight: 83.5 kg

DRUGS (9)
  1. LAMICTAL [Concomitant]
     Indication: EPILEPSY
     Route: 048
  2. VIMPAT [Suspect]
     Dosage: 200 MG IN THE MORNING, 150 MG IN THE EVENING
     Route: 048
     Dates: start: 20120219, end: 20120219
  3. LEVOXYL [Concomitant]
     Indication: THYROID DISORDER
     Route: 048
  4. KEPPRA [Suspect]
     Indication: EPILEPSY
     Route: 048
     Dates: start: 20120201
  5. VERAPAMIL EXTENDED-RELEASE [Concomitant]
     Indication: HYPERTENSION
     Route: 048
  6. DILANTIN [Concomitant]
     Indication: EPILEPSY
     Route: 048
  7. COSOPT [Concomitant]
     Indication: GLAUCOMA
     Dosage: 2 DROPS EACH EYE
  8. VIMPAT [Suspect]
     Indication: EPILEPSY
     Route: 048
     Dates: start: 20110901, end: 20120218
  9. VIMPAT [Suspect]
     Route: 048
     Dates: start: 20120220

REACTIONS (6)
  - BLOOD PRESSURE INCREASED [None]
  - CONVULSION [None]
  - DIZZINESS [None]
  - FEELING DRUNK [None]
  - GAIT DISTURBANCE [None]
  - SOMNOLENCE [None]
